FAERS Safety Report 6804903-X (Version None)
Quarter: 2010Q2

REPORT INFORMATION
  Report Type: 
  Country: None (occurrence: None)
  Receive Date: 20100628
  Receipt Date: 20070716
  Transmission Date: 20101027
  Serious: No
  Sender: FDA-Public Use
  Company Number: US-PFIZER INC-2007056154

PATIENT
  Sex: Female
  Weight: 59.1 kg

DRUGS (8)
  1. XALATAN [Suspect]
     Indication: GLAUCOMA
     Dosage: OD: EVERY NIGHT
     Route: 031
     Dates: start: 20070701
  2. GLUCOPHAGE [Concomitant]
  3. LOVASTATIN [Concomitant]
  4. AMARYL [Concomitant]
  5. ACTOS [Concomitant]
  6. HYDROCHLOROTHIAZIDE [Concomitant]
  7. PREMARIN [Concomitant]
  8. DIOVAN HCT [Concomitant]

REACTIONS (3)
  - EYE IRRITATION [None]
  - EYE PAIN [None]
  - OCULAR HYPERAEMIA [None]
